FAERS Safety Report 11873715 (Version 1)
Quarter: 2015Q4

REPORT INFORMATION
  Report Type: Spontaneous
  Country: US (occurrence: US)
  Receive Date: 20151229
  Receipt Date: 20151229
  Transmission Date: 20160305
  Serious: Yes (Other)
  Sender: FDA-Public Use
  Company Number: US-JNJFOC-20151214136

PATIENT
  Sex: Female

DRUGS (2)
  1. TYLENOL [Suspect]
     Active Substance: ACETAMINOPHEN
     Indication: SEIZURE
     Route: 065
  2. TYLENOL [Suspect]
     Active Substance: ACETAMINOPHEN
     Route: 065

REACTIONS (7)
  - Seizure [Unknown]
  - Cyst [Unknown]
  - Cerebral atrophy [Unknown]
  - Product use issue [Unknown]
  - Off label use [Unknown]
  - Cerebral cyst [None]
  - Cerebral cyst [Unknown]
